FAERS Safety Report 5108837-0 (Version None)
Quarter: 2006Q3

REPORT INFORMATION
  Report Type: 
  Country: None (occurrence: None)
  Receive Date: 20060915
  Receipt Date: 20060915
  Transmission Date: 20061208
  Serious: Yes (Life-Threatening, Hospitalization, Disabling)
  Sender: FDA-Public Use
  Company Number: None

PATIENT
  Age: 64 Year
  Sex: Female
  Weight: 128 kg

DRUGS (1)
  1. DEPODUR [Suspect]
     Indication: POSTOPERATIVE ANALGESIA
     Dosage: 10MG   ONE TIME DOSE   IM
     Route: 030
     Dates: start: 20060911, end: 20060911

REACTIONS (3)
  - DYSPNOEA [None]
  - HYPOXIA [None]
  - POST PROCEDURAL COMPLICATION [None]
